FAERS Safety Report 17127088 (Version 3)
Quarter: 2020Q3

REPORT INFORMATION
  Report Type: Spontaneous
  Country: JP (occurrence: JP)
  Receive Date: 20191209
  Receipt Date: 20200930
  Transmission Date: 20201102
  Serious: Yes (Life-Threatening, Hospitalization, Other)
  Sender: FDA-Public Use
  Company Number: JP-TEVA-2019-JP-1150715

PATIENT
  Age: 71 Year
  Sex: Male

DRUGS (3)
  1. RITUXIMAB. [Suspect]
     Active Substance: RITUXIMAB
     Indication: B-CELL LYMPHOMA
     Dosage: 375 MG/M2 DAILY;
     Route: 041
     Dates: start: 20181220
  2. BENDAMUSTINE HYDROCHLORIDE. [Suspect]
     Active Substance: BENDAMUSTINE HYDROCHLORIDE
     Dosage: ONCE DAILY (CYCLIC)
     Route: 042
     Dates: start: 20181220, end: 20181221
  3. BENDAMUSTINE HYDROCHLORIDE. [Suspect]
     Active Substance: BENDAMUSTINE HYDROCHLORIDE
     Indication: B-CELL LYMPHOMA
     Dosage: ONCE DAILY (CYCLIC)
     Route: 042
     Dates: start: 20181107, end: 20181108

REACTIONS (10)
  - Pyrexia [Unknown]
  - Small intestine carcinoma [Unknown]
  - Shock [Unknown]
  - Abdominal abscess [Unknown]
  - Infection [Unknown]
  - Colon cancer [Unknown]
  - C-reactive protein increased [Unknown]
  - Sepsis [Recovered/Resolved]
  - Enteritis [Recovered/Resolved]
  - Ileus [Recovering/Resolving]

NARRATIVE: CASE EVENT DATE: 20181223
